FAERS Safety Report 10672385 (Version 1)
Quarter: 2014Q4

REPORT INFORMATION
  Report Type: Spontaneous
  Country: FR (occurrence: FR)
  Receive Date: 20141223
  Receipt Date: 20141223
  Transmission Date: 20150529
  Serious: Yes (Other)
  Sender: FDA-Public Use
  Company Number: FR-SA-2014SA173210

PATIENT
  Age: 51 Year
  Sex: Female

DRUGS (9)
  1. LASILIX [Suspect]
     Active Substance: FUROSEMIDE
     Route: 048
     Dates: start: 201209
  2. SPECIAFOLDINE [Concomitant]
     Active Substance: FOLIC ACID
     Route: 048
  3. ALDACTONE [Suspect]
     Active Substance: SPIRONOLACTONE
     Dosage: STRENGTH : 50 MG
     Route: 048
     Dates: start: 201209, end: 201406
  4. NICOBION [Concomitant]
     Active Substance: NIACINAMIDE
     Route: 065
  5. DIFFU K [Suspect]
     Active Substance: POTASSIUM CHLORIDE
     Route: 048
     Dates: start: 2013
  6. INEXIUM [Suspect]
     Active Substance: ESOMEPRAZOLE
     Dosage: STRENGTH : 40 MG
     Route: 048
     Dates: start: 2013
  7. TOPALGIC [Suspect]
     Active Substance: TRAMADOL
     Indication: PAIN
     Dosage: STRENGTH : 50 MG
     Route: 048
     Dates: start: 2013
  8. AOTAL [Concomitant]
     Active Substance: ACAMPROSATE CALCIUM
  9. MAG 2 [Concomitant]
     Active Substance: MAGNESIUM CHLORIDE
     Route: 065

REACTIONS (4)
  - Alopecia [Recovered/Resolved with Sequelae]
  - Drug eruption [Recovered/Resolved with Sequelae]
  - Lichenoid keratosis [Recovered/Resolved with Sequelae]
  - Pruritus [Recovered/Resolved with Sequelae]

NARRATIVE: CASE EVENT DATE: 2013
